FAERS Safety Report 9885900 (Version 1)
Quarter: 2014Q1

REPORT INFORMATION
  Report Type: Spontaneous
  Country: US (occurrence: None)
  Receive Date: 20140207
  Receipt Date: 20140207
  Transmission Date: 20141002
  Serious: Yes (Other)
  Sender: FDA-Public Use
  Company Number: None

PATIENT
  Age: 79 Year
  Sex: Female

DRUGS (8)
  1. POMALIDOMIDE [Suspect]
     Indication: PLASMA CELL MYELOMA
     Route: 048
     Dates: start: 20131118
  2. POMALIDOMIDE [Concomitant]
  3. OMEPRAZOLE [Concomitant]
  4. AMLODIPINE [Concomitant]
  5. CLONIDINE [Concomitant]
  6. METOPROLOL [Concomitant]
  7. ALBUTEROL [Concomitant]
  8. LATANOPROST [Concomitant]

REACTIONS (6)
  - Deep vein thrombosis [None]
  - Local swelling [None]
  - Erythema [None]
  - Chest pain [None]
  - Dyspnoea [None]
  - Pyrexia [None]
